FAERS Safety Report 8261432 (Version 2)
Quarter: 2013Q1

REPORT INFORMATION
  Report Type: Spontaneous
  Country: CA (occurrence: CA)
  Receive Date: 20111123
  Receipt Date: 20130329
  Transmission Date: 20140127
  Serious: Yes (Hospitalization)
  Sender: FDA-Public Use
  Company Number: CA-JNJFOC-20111107073

PATIENT
  Age: 28 Year
  Sex: Female
  Weight: 59 kg

DRUGS (14)
  1. REMICADE [Suspect]
     Indication: COLITIS ULCERATIVE
     Dosage: 5 MG/KG
     Route: 042
     Dates: start: 20110816
  2. REMICADE [Suspect]
     Indication: COLITIS ULCERATIVE
     Dosage: 2ND DOSE
     Route: 042
     Dates: start: 20110830
  3. REMICADE [Suspect]
     Indication: COLITIS ULCERATIVE
     Dosage: 4TH DOSE
     Route: 042
     Dates: start: 20111116
  4. REMICADE [Suspect]
     Indication: COLITIS ULCERATIVE
     Dosage: 3RD DOSE
     Route: 042
     Dates: start: 20110926
  5. CORTICOSTEROIDS [Concomitant]
     Route: 065
  6. MEZAVANT [Concomitant]
     Route: 065
     Dates: start: 20111029
  7. DICYCLOMINE [Concomitant]
     Route: 048
     Dates: start: 20111029
  8. CALCIUM [Concomitant]
     Route: 065
     Dates: start: 20111029
  9. VITAMIN D [Concomitant]
     Route: 065
     Dates: start: 20111029
  10. FERROUS SULFATE [Concomitant]
     Route: 048
     Dates: start: 20111029
  11. NASONEX [Concomitant]
     Indication: SEASONAL ALLERGY
     Route: 045
  12. CORTIFOAM [Concomitant]
     Route: 065
     Dates: start: 20111029
  13. ATIVAN [Concomitant]
     Route: 065
     Dates: start: 20111029
  14. MICRONOR [Concomitant]
     Route: 065
     Dates: start: 20111029

REACTIONS (2)
  - Colitis [Unknown]
  - Clostridium difficile infection [Recovered/Resolved]
